FAERS Safety Report 4950036-7 (Version None)
Quarter: 2006Q1

REPORT INFORMATION
  Report Type: 
  Country: None (occurrence: None)
  Receive Date: 20060315
  Receipt Date: 20060223
  Transmission Date: 20060701
  Serious: Yes (Hospitalization)
  Sender: FDA-Public Use
  Company Number: BE200602004698

PATIENT
  Age: 11 Year
  Sex: Male

DRUGS (1)
  1. B4Z-MC-LYBX COMORBID ODD IN PEDS(ATOMOXETINE HYDROCHLORIDE) CAPSULE [Suspect]
     Indication: ATTENTION DEFICIT/HYPERACTIVITY DISORDER
     Dosage: 65 MG, DAILY (1/D), ORAL
     Route: 048
     Dates: start: 20040610, end: 20051114

REACTIONS (1)
  - APPENDICITIS [None]
